FAERS Safety Report 5074009-1 (Version None)
Quarter: 2006Q3

REPORT INFORMATION
  Report Type: 
  Country: None (occurrence: None)
  Receive Date: 20060808
  Receipt Date: 20051201
  Transmission Date: 20061208
  Serious: No
  Sender: FDA-Public Use
  Company Number: US-AMGEN-KDL159989

PATIENT
  Sex: Male
  Weight: 61.3 kg

DRUGS (6)
  1. PROCRIT [Suspect]
     Indication: HIV INFECTION
     Route: 058
     Dates: start: 20041201
  2. RIBAVIRIN [Concomitant]
  3. NORVIR [Concomitant]
  4. INTERFERON [Concomitant]
  5. DIDANOSINE [Concomitant]
  6. DIFLUCAN [Concomitant]

REACTIONS (2)
  - ASTHENIA [None]
  - INCORRECT DOSE ADMINISTERED [None]
